FAERS Safety Report 18986739 (Version 1)
Quarter: 2021Q1

REPORT INFORMATION
  Report Type: Report from Study
  Country: BR (occurrence: BR)
  Receive Date: 20210309
  Receipt Date: 20210309
  Transmission Date: 20210420
  Serious: Yes (Other)
  Sender: FDA-Public Use
  Company Number: NVSC2021BR052511

PATIENT
  Sex: Female

DRUGS (3)
  1. TRILEPTAL [Suspect]
     Active Substance: OXCARBAZEPINE
     Indication: PRODUCT USED FOR UNKNOWN INDICATION
     Dosage: 300 MG, TID, START MORE THAN 10 YEARS
     Route: 065
  2. TRILEPTAL [Suspect]
     Active Substance: OXCARBAZEPINE
     Dosage: 600 MG, BID
     Route: 065
  3. TRILEPTAL [Suspect]
     Active Substance: OXCARBAZEPINE
     Dosage: 300 MG, TID
     Route: 065

REACTIONS (11)
  - Drug tolerance [Unknown]
  - Drooling [Unknown]
  - Muscle contractions involuntary [Unknown]
  - Epilepsy [Unknown]
  - Feeling abnormal [Unknown]
  - Loss of consciousness [Unknown]
  - Movement disorder [Unknown]
  - Drug level below therapeutic [Unknown]
  - Seizure [Recovered/Resolved]
  - Head discomfort [Unknown]
  - Metabolic disorder [Unknown]
